FAERS Safety Report 9798226 (Version 2)
Quarter: 2014Q1

REPORT INFORMATION
  Report Type: Spontaneous
  Country: FR (occurrence: FR)
  Receive Date: 20140106
  Receipt Date: 20140123
  Transmission Date: 20141002
  Serious: Yes (Death, Hospitalization)
  Sender: FDA-Public Use
  Company Number: FR-PFIZER INC-2013373485

PATIENT
  Age: 30 Year
  Sex: Female

DRUGS (1)
  1. AMLOR [Suspect]
     Dosage: 900 MG, SINGLE
     Route: 048
     Dates: start: 20131209, end: 20131209

REACTIONS (8)
  - Peripheral ischaemia [Unknown]
  - Rhabdomyolysis [Unknown]
  - Disseminated intravascular coagulation [Unknown]
  - Cardiovascular insufficiency [Fatal]
  - Multi-organ failure [Fatal]
  - Overdose [Unknown]
  - Haematoma [Unknown]
  - Acute respiratory failure [Unknown]
